FAERS Safety Report 5299139-0 (Version None)
Quarter: 2007Q2

REPORT INFORMATION
  Report Type: 
  Country: None (occurrence: None)
  Receive Date: 20070411
  Receipt Date: 20070411
  Transmission Date: 20071010
  Serious: Yes (Other)
  Sender: FDA-Public Use
  Company Number: None

PATIENT
  Age: 58 Year
  Sex: Male
  Weight: 66.6788 kg

DRUGS (2)
  1. HALCION [Suspect]
     Indication: INSOMNIA
     Dosage: 1 FULL TABLET 1 TIME
     Dates: start: 20060630
  2. HALCION [Suspect]
     Indication: OVERWORK
     Dosage: 1 FULL TABLET 1 TIME
     Dates: start: 20060630

REACTIONS (7)
  - ABNORMAL BEHAVIOUR [None]
  - AMNESIA [None]
  - CONFUSIONAL STATE [None]
  - DISORIENTATION [None]
  - DRUG INEFFECTIVE [None]
  - FEELING ABNORMAL [None]
  - LEGAL PROBLEM [None]
